FAERS Safety Report 6124138-6 (Version None)
Quarter: 2009Q1

REPORT INFORMATION
  Report Type: 
  Country: None (occurrence: None)
  Receive Date: 20090318
  Receipt Date: 20090318
  Transmission Date: 20090719
  Serious: Yes (Disabling)
  Sender: FDA-Public Use
  Company Number: None

PATIENT
  Sex: Male
  Weight: 106.5953 kg

DRUGS (3)
  1. HUMALOG [Suspect]
     Indication: TYPE 1 DIABETES MELLITUS
     Dosage: INSULIN PUMP: 24 UNITS BASAL BOLUS AS REQUIRED
     Dates: start: 20081202, end: 20081207
  2. HUMALOG [Suspect]
     Indication: TYPE 1 DIABETES MELLITUS
     Dosage: INSULIN PUMP: 24 UNITS BASAL BOLUS AS REQUIRED
     Dates: start: 20090202, end: 20090203
  3. ... [Concomitant]

REACTIONS (4)
  - BLOOD GLUCOSE INCREASED [None]
  - DRUG INEFFECTIVE [None]
  - POOR QUALITY DRUG ADMINISTERED [None]
  - PRODUCT QUALITY ISSUE [None]
